FAERS Safety Report 9533975 (Version 1)
Quarter: 2013Q2

REPORT INFORMATION
  Report Type: Spontaneous
  Country: US (occurrence: None)
  Receive Date: 20130423
  Receipt Date: 20130423
  Transmission Date: 20140414
  Serious: Yes (Life-Threatening, Hospitalization)
  Sender: FDA-Public Use
  Company Number: 1302USA003874

PATIENT
  Age: 37 Year
  Sex: Female

DRUGS (1)
  1. TEMODAR (TEMOZOLOMIDE) CAPSULE [Suspect]
     Indication: NEOPLASM MALIGNANT
     Route: 048

REACTIONS (1)
  - Neutropenia [None]
